FAERS Safety Report 4511370-8 (Version None)
Quarter: 2004Q4

REPORT INFORMATION
  Report Type: 
  Country: None (occurrence: None)
  Receive Date: 20041123
  Receipt Date: 20041123
  Transmission Date: 20050328
  Serious: Yes (Hospitalization)
  Sender: FDA-Public Use
  Company Number: None

PATIENT
  Sex: Female
  Weight: 105 kg

DRUGS (1)
  1. XYLOCAINE [Suspect]
     Indication: DENTAL TREATMENT
     Dosage: 3.6CC
     Dates: start: 20041104, end: 20041104

REACTIONS (5)
  - BLOOD PRESSURE INCREASED [None]
  - COMA [None]
  - RESPIRATORY RATE INCREASED [None]
  - SPEECH DISORDER [None]
  - TREMOR [None]
